FAERS Safety Report 9608393 (Version 1)
Quarter: 2013Q4

REPORT INFORMATION
  Report Type: Spontaneous
  Country: PL (occurrence: PL)
  Receive Date: 20131009
  Receipt Date: 20131009
  Transmission Date: 20140711
  Serious: Yes (Other)
  Sender: FDA-Public Use
  Company Number: PL-BAYER-2013-120764

PATIENT
  Age: 58 Year
  Sex: Male
  Weight: 79 kg

DRUGS (1)
  1. GADOVIST [Suspect]
     Indication: NUCLEAR MAGNETIC RESONANCE IMAGING
     Dosage: 8 ML, UNK
     Route: 042
     Dates: start: 20130809, end: 20130809

REACTIONS (4)
  - Hypoaesthesia oral [Recovered/Resolved]
  - Localised oedema [Recovered/Resolved]
  - Conjunctival hyperaemia [Recovered/Resolved]
  - Urticaria [Recovered/Resolved]
